FAERS Safety Report 7547415-0 (Version None)
Quarter: 2011Q2

REPORT INFORMATION
  Report Type: 
  Country: None (occurrence: None)
  Receive Date: 20110614
  Receipt Date: 20110601
  Transmission Date: 20111010
  Serious: Yes (Hospitalization)
  Sender: FDA-Public Use
  Company Number: FR-UCBSA-034417

PATIENT
  Sex: Male

DRUGS (5)
  1. DEPAKENE [Concomitant]
     Route: 048
     Dates: start: 20050101
  2. KEPPRA [Suspect]
     Route: 048
     Dates: start: 20050101, end: 20110326
  3. ACETAMINOPHEN [Concomitant]
  4. ASPIRIN [Concomitant]
  5. PRAVASTATIN [Concomitant]

REACTIONS (1)
  - THROMBOCYTOPENIA [None]
